FAERS Safety Report 15508340 (Version 1)
Quarter: 2018Q4

REPORT INFORMATION
  Report Type: Report from Study
  Country: AU (occurrence: AU)
  Receive Date: 20181016
  Receipt Date: 20181016
  Transmission Date: 20190205
  Serious: Yes (Hospitalization, Other)
  Sender: FDA-Public Use
  Company Number: AU-BAYER-2018-188847

PATIENT
  Age: 83 Year
  Sex: Female

DRUGS (9)
  1. HEPARIN [Suspect]
     Active Substance: HEPARIN SODIUM
     Indication: ACUTE MYOCARDIAL INFARCTION
     Route: 042
  2. STATIN [Concomitant]
     Active Substance: UNSPECIFIED INGREDIENT
     Dosage: UNK
  3. PANADOL [Concomitant]
     Active Substance: ACETAMINOPHEN
     Indication: ARTHRITIS
     Dosage: 1330 G, PRN
     Route: 048
     Dates: start: 2015
  4. METFORMIN [Concomitant]
     Active Substance: METFORMIN HYDROCHLORIDE
     Indication: TYPE 2 DIABETES MELLITUS
     Dosage: 1 DF, QD
     Route: 048
     Dates: start: 2012
  5. CLOPIDOGREL [Suspect]
     Active Substance: CLOPIDOGREL BISULFATE
     Indication: ANTICOAGULANT THERAPY
     Route: 048
  6. ASPIRIN. [Suspect]
     Active Substance: ASPIRIN
     Indication: ANTICOAGULANT THERAPY
  7. SERETIDE [Concomitant]
     Active Substance: FLUTICASONE PROPIONATE\SALMETEROL XINAFOATE
     Indication: CHRONIC OBSTRUCTIVE PULMONARY DISEASE
     Dosage: 1 DF, PRN
     Route: 055
     Dates: start: 2013
  8. INSULIN INJECTION, BIPHASIC [Concomitant]
     Indication: TYPE 2 DIABETES MELLITUS
     Dosage: UNK
     Route: 058
     Dates: start: 2012
  9. TIOTROPIUM [Concomitant]
     Active Substance: TIOTROPIUM
     Indication: CHRONIC OBSTRUCTIVE PULMONARY DISEASE
     Dosage: 2 DF, PRN
     Route: 055
     Dates: start: 2013

REACTIONS (21)
  - Activated partial thromboplastin time prolonged [None]
  - Portal hypertension [None]
  - Acute myocardial infarction [Recovered/Resolved with Sequelae]
  - Oedema peripheral [None]
  - Hypertension [None]
  - Pneumonia [Recovered/Resolved]
  - Dysuria [Recovered/Resolved]
  - Haemoglobin decreased [None]
  - Somnolence [Recovered/Resolved]
  - Gastric ulcer [None]
  - Duodenal ulcer [None]
  - Catheter site haemorrhage [None]
  - Cardiac failure [Recovered/Resolved with Sequelae]
  - Confusional state [Recovered/Resolved]
  - Blood glucose increased [Recovered/Resolved]
  - Gastrooesophageal reflux disease [None]
  - Upper gastrointestinal haemorrhage [None]
  - Pyrexia [Recovered/Resolved]
  - Tachycardia [None]
  - Hypotension [None]
  - Varices oesophageal [None]

NARRATIVE: CASE EVENT DATE: 201807
